FAERS Safety Report 10618077 (Version 1)
Quarter: 2014Q4

REPORT INFORMATION
  Report Type: Spontaneous
  Country: AR (occurrence: AR)
  Receive Date: 20141202
  Receipt Date: 20141202
  Transmission Date: 20150529
  Serious: Yes (Other)
  Sender: FDA-Public Use
  Company Number: AR-AMGEN-ARGSP2014093128

PATIENT
  Age: 35 Year
  Sex: Female

DRUGS (1)
  1. ENBREL [Suspect]
     Active Substance: ETANERCEPT
     Indication: PSORIASIS
     Dosage: UNK
     Route: 065
     Dates: start: 20110714, end: 20130628

REACTIONS (6)
  - Application site pain [Unknown]
  - Blood pressure decreased [Unknown]
  - Seizure [Unknown]
  - Syncope [Unknown]
  - Psoriasis [Unknown]
  - Drug ineffective [Unknown]
